FAERS Safety Report 8388671-9 (Version None)
Quarter: 2012Q2

REPORT INFORMATION
  Report Type: 
  Country: None (occurrence: None)
  Receive Date: 20120525
  Receipt Date: 20120517
  Transmission Date: 20120825
  Serious: No
  Sender: FDA-Public Use
  Company Number: US-ROXANE LABORATORIES, INC.-2012-RO-00921RO

PATIENT
  Sex: Female

DRUGS (2)
  1. BUTORPHANOL TARATRATE [Suspect]
     Indication: MIGRAINE
     Route: 045
     Dates: start: 20120328, end: 20120328
  2. HYDROCODONE BITARTRATE [Concomitant]
     Indication: INTERVERTEBRAL DISC DEGENERATION

REACTIONS (1)
  - DRUG INEFFECTIVE [None]
